FAERS Safety Report 4377716-9 (Version None)
Quarter: 2004Q2

REPORT INFORMATION
  Report Type: 
  Country: None (occurrence: None)
  Receive Date: 20040615
  Receipt Date: 20040602
  Transmission Date: 20050107
  Serious: Yes (Hospitalization)
  Sender: FDA-Public Use
  Company Number: PHFR2004GB02332

PATIENT
  Age: 48 Year
  Sex: Female

DRUGS (6)
  1. DICLOFENAC SODIUM [Suspect]
     Indication: BACK PAIN
     Dosage: 50 MG, TID
     Route: 048
     Dates: start: 20040201, end: 20040507
  2. BECOTIDE [Concomitant]
     Indication: ASTHMA
     Dosage: 2 PUFFS BD
  3. SEREVENT [Concomitant]
     Indication: ASTHMA
     Dosage: 2 PUFFS BD
  4. ALBUTEROL SULFATE [Concomitant]
     Indication: ASTHMA
     Dosage: 2 PUFFS/BD
  5. DOTHIEPIN HYDROCHLORIDE [Concomitant]
     Indication: DEPRESSION
     Dosage: 150 MG, BID
     Route: 048
  6. CO-CODAMOL [Concomitant]
     Dosage: 2 UNK, PRN
     Route: 048

REACTIONS (8)
  - CHEST PAIN [None]
  - DUODENAL ULCER HAEMORRHAGE [None]
  - DYSPNOEA [None]
  - GASTRITIS [None]
  - HAEMATEMESIS [None]
  - HAEMOGLOBIN DECREASED [None]
  - HELICOBACTER PYLORI IDENTIFICATION TEST POSITIVE [None]
  - HIATUS HERNIA [None]
